FAERS Safety Report 12202861 (Version 4)
Quarter: 2016Q2

REPORT INFORMATION
  Report Type: Report from Study
  Country: SE (occurrence: SE)
  Receive Date: 20160322
  Receipt Date: 20160411
  Transmission Date: 20160815
  Serious: Yes (Hospitalization)
  Sender: FDA-Public Use
  Company Number: SE-ABBVIE-16P-150-1589205-00

PATIENT
  Age: 73 Year
  Sex: Male

DRUGS (2)
  1. DUODOPA [Suspect]
     Active Substance: CARBIDOPA\LEVODOPA
     Dosage: MORNING DOSE: 8 ML, CONTINUOUS DOSE: 4.8 ML/H, EXTRA DOSE 1.5 ML/H.
     Route: 050
     Dates: start: 201604
  2. DUODOPA [Suspect]
     Active Substance: CARBIDOPA\LEVODOPA
     Indication: PARKINSON^S DISEASE
     Dosage: MORNING DOSE: 8 ML, CONTINUOUS DOSE: 5 ML/H, EXTRA DOSE 1.5 ML/H.
     Route: 050
     Dates: start: 20160314, end: 201604

REACTIONS (7)
  - Musculoskeletal stiffness [Not Recovered/Not Resolved]
  - Anxiety [Recovering/Resolving]
  - Musculoskeletal stiffness [Not Recovered/Not Resolved]
  - Hallucination [Unknown]
  - Insomnia [Recovering/Resolving]
  - Amnesia [Recovered/Resolved]
  - Dyskinesia [Unknown]

NARRATIVE: CASE EVENT DATE: 2016
